FAERS Safety Report 4558605-3 (Version None)
Quarter: 2005Q1

REPORT INFORMATION
  Report Type: 
  Country: None (occurrence: None)
  Receive Date: 20050121
  Receipt Date: 20050118
  Transmission Date: 20050727
  Serious: Yes (Other)
  Sender: FDA-Public Use
  Company Number: BR-ROCHE-392808

PATIENT
  Age: 40 Year
  Sex: Female
  Weight: 90 kg

DRUGS (2)
  1. XENICAL [Suspect]
     Indication: OBESITY
     Route: 048
     Dates: start: 20050106, end: 20050115
  2. SIBUTRAMINE HYDROCHLORIDE [Concomitant]
     Route: 048

REACTIONS (3)
  - CONSTIPATION [None]
  - PAINFUL DEFAECATION [None]
  - SELF-MEDICATION [None]
